FAERS Safety Report 6204338-7 (Version None)
Quarter: 2009Q2

REPORT INFORMATION
  Report Type: 
  Country: None (occurrence: None)
  Receive Date: 20090527
  Receipt Date: 20090515
  Transmission Date: 20091009
  Serious: Yes (Life-Threatening, Hospitalization)
  Sender: FDA-Public Use
  Company Number: GR-PFIZER INC-2008003025

PATIENT
  Age: 40 Year

DRUGS (2)
  1. ZIPRASIDONE HCL [Suspect]
     Dosage: 160 MG, 1X/DAY
     Route: 048
     Dates: start: 20071218, end: 20071228
  2. LEXOTANIL [Concomitant]
     Route: 048
     Dates: end: 20071228

REACTIONS (2)
  - PSYCHOTIC DISORDER [None]
  - SUICIDE ATTEMPT [None]
